FAERS Safety Report 20785388 (Version 2)
Quarter: 2022Q2

REPORT INFORMATION
  Report Type: Report from Study
  Country: BR (occurrence: BR)
  Receive Date: 20220504
  Receipt Date: 20220531
  Transmission Date: 20220720
  Serious: No
  Sender: FDA-Public Use
  Company Number: BR-JNJFOC-20220449954

PATIENT
  Age: 43 Year
  Sex: Male
  Weight: 78 kg

DRUGS (9)
  1. SIMPONI [Suspect]
     Active Substance: GOLIMUMAB
     Indication: Ankylosing spondylitis
     Dosage: STRENGTH: 50.00 MG / 0.50 ML
     Route: 058
     Dates: start: 20201031
  2. SIMPONI [Suspect]
     Active Substance: GOLIMUMAB
     Route: 058
     Dates: start: 2021
  3. SIMPONI [Suspect]
     Active Substance: GOLIMUMAB
  4. SIMPONI [Suspect]
     Active Substance: GOLIMUMAB
  5. SIMPONI [Suspect]
     Active Substance: GOLIMUMAB
     Indication: Ankylosing spondylitis
     Dosage: 50.00 MG / 0.50 ML
     Route: 058
  6. SIMPONI [Suspect]
     Active Substance: GOLIMUMAB
  7. SIMPONI [Suspect]
     Active Substance: GOLIMUMAB
  8. SIMPONI [Suspect]
     Active Substance: GOLIMUMAB
  9. SULFASALAZINE [Concomitant]
     Active Substance: SULFASALAZINE

REACTIONS (3)
  - Device issue [Unknown]
  - Underdose [Unknown]
  - Application site burn [Unknown]

NARRATIVE: CASE EVENT DATE: 20220101
